FAERS Safety Report 16177227 (Version 3)
Quarter: 2019Q3

REPORT INFORMATION
  Report Type: Spontaneous
  Country: US (occurrence: US)
  Receive Date: 20190410
  Receipt Date: 20190916
  Transmission Date: 20191004
  Serious: No
  Sender: FDA-Public Use
  Company Number: US-ASTRAZENECA-2019SE43250

PATIENT
  Age: 20548 Day
  Sex: Female
  Weight: 167.8 kg

DRUGS (2)
  1. BYDUREON [Suspect]
     Active Substance: EXENATIDE
     Route: 058
  2. BYDUREON [Suspect]
     Active Substance: EXENATIDE
     Dosage: SDT
     Route: 058

REACTIONS (8)
  - Circumstance or information capable of leading to medication error [Unknown]
  - Injection site haemorrhage [Unknown]
  - Injection site extravasation [Unknown]
  - Glycosylated haemoglobin decreased [Unknown]
  - Injection site pain [Unknown]
  - Device issue [Unknown]
  - Intentional device misuse [Unknown]
  - Incorrect dose administered [Unknown]

NARRATIVE: CASE EVENT DATE: 20190312
